FAERS Safety Report 4745748-4 (Version None)
Quarter: 2005Q3

REPORT INFORMATION
  Report Type: 
  Country: None (occurrence: None)
  Receive Date: 20050815
  Receipt Date: 20050815
  Transmission Date: 20060218
  Serious: No
  Sender: FDA-Public Use
  Company Number: None

PATIENT
  Age: 58 Year
  Sex: Male
  Weight: 79.8 kg

DRUGS (4)
  1. ROCEPHIN [Suspect]
     Indication: POSTOPERATIVE CARE
     Dosage: 1 GRAM   STAT  INTRAVENOU
     Route: 042
     Dates: start: 20050728, end: 20050728
  2. PHENAZOPYRIDINE HCL TAB [Concomitant]
  3. MORPHINE [Concomitant]
  4. TORADOL [Concomitant]

REACTIONS (2)
  - LARYNGEAL OEDEMA [None]
  - SWOLLEN TONGUE [None]
